FAERS Safety Report 13851787 (Version 7)
Quarter: 2021Q4

REPORT INFORMATION
  Report Type: Report from Study
  Country: AU (occurrence: None)
  Receive Date: 20170810
  Receipt Date: 20211213
  Transmission Date: 20220303
  Serious: Yes (Hospitalization)
  Sender: FDA-Public Use
  Company Number: AU-ROCHE-1974933

PATIENT
  Age: 69 Year
  Sex: Male
  Weight: 87.6 kg

DRUGS (48)
  1. VENETOCLAX [Suspect]
     Active Substance: VENETOCLAX
     Indication: Lymphocytic leukaemia
     Dosage: DATE OF MOST RECENT DOSE OF VENETOCLAX 400MG: 23/FEB/2017
     Route: 048
     Dates: start: 20160628
  2. OBINUTUZUMAB [Suspect]
     Active Substance: OBINUTUZUMAB
     Indication: Lymphocytic leukaemia
     Dosage: DATE OF MOST RECENT DOSE OF OBINUTUZUMAB 1000MG: 25/OCT/2016 AT 10:00
     Route: 042
     Dates: start: 20160516
  3. METAMUCIL [Concomitant]
     Active Substance: PLANTAGO SEED
     Dosage: DOSE: 1OTHER
     Route: 048
     Dates: start: 200401
  4. DEXAMETHASONE [Concomitant]
     Active Substance: DEXAMETHASONE
     Dosage: PREVENT OR MANAGE INFUSION REACTION
     Route: 042
     Dates: start: 20160516
  5. ACETAMINOPHEN [Concomitant]
     Active Substance: ACETAMINOPHEN
     Dosage: PROPHYLAXIS OR PAIN OR FEVER
     Route: 048
     Dates: start: 20160516
  6. RANITIDINE [Concomitant]
     Active Substance: RANITIDINE
     Indication: Cytokine release syndrome
     Route: 042
     Dates: start: 20160516
  7. LORATADINE [Concomitant]
     Active Substance: LORATADINE
     Route: 048
     Dates: start: 20160516
  8. PROMETHAZINE [Concomitant]
     Active Substance: PROMETHAZINE HYDROCHLORIDE
     Indication: Infusion related reaction
     Route: 042
     Dates: start: 20160516
  9. PROMETHAZINE [Concomitant]
     Active Substance: PROMETHAZINE HYDROCHLORIDE
     Route: 048
     Dates: start: 20160606
  10. METOCLOPRAMIDE [Concomitant]
     Active Substance: METOCLOPRAMIDE
     Indication: Nausea
     Route: 042
     Dates: start: 20160516
  11. METOCLOPRAMIDE [Concomitant]
     Active Substance: METOCLOPRAMIDE
     Indication: Vomiting
     Route: 048
     Dates: start: 20160808
  12. ACYCLOVIR [Concomitant]
     Active Substance: ACYCLOVIR
     Indication: Infection prophylaxis
     Route: 048
     Dates: start: 20160516, end: 20170428
  13. BION TEARS [Concomitant]
     Active Substance: DEXTRAN 70\HYPROMELLOSE 2910 (4000 MPA.S)
     Indication: Eye irritation
     Dosage: DROPS
     Route: 047
     Dates: start: 20160525
  14. FILGRASTIM [Concomitant]
     Active Substance: FILGRASTIM
     Dosage: ASSIST CELL RECOVERY
     Route: 058
     Dates: start: 20160601, end: 20170329
  15. MORPHINE [Concomitant]
     Active Substance: MORPHINE
     Indication: Arthralgia
     Route: 048
     Dates: start: 20160810
  16. MORPHINE [Concomitant]
     Active Substance: MORPHINE
     Indication: Back pain
  17. INULIN [Concomitant]
     Active Substance: INULIN
     Indication: Constipation
     Dosage: DOSE: 2OTHER
     Route: 048
     Dates: start: 20160614
  18. LACTULOSE [Concomitant]
     Active Substance: LACTULOSE
     Indication: Constipation
     Route: 048
     Dates: start: 20160719
  19. IBUPROFEN [Concomitant]
     Active Substance: IBUPROFEN
     Indication: Arthralgia
     Route: 048
     Dates: start: 20160726
  20. IBUPROFEN [Concomitant]
     Active Substance: IBUPROFEN
     Indication: Back pain
  21. OXYCODONE HYDROCHLORIDE [Concomitant]
     Active Substance: OXYCODONE HYDROCHLORIDE
     Indication: Back pain
     Route: 048
     Dates: start: 20160808
  22. OXYCODONE HYDROCHLORIDE [Concomitant]
     Active Substance: OXYCODONE HYDROCHLORIDE
     Indication: Arthralgia
  23. AMLODIPINE [Concomitant]
     Active Substance: AMLODIPINE BESYLATE
     Indication: Hypertension
     Route: 048
     Dates: start: 20170224, end: 20170310
  24. AMLODIPINE [Concomitant]
     Active Substance: AMLODIPINE BESYLATE
     Route: 048
     Dates: start: 20170311
  25. PLATELETS [Concomitant]
     Active Substance: HUMAN PLATELET, ALLOGENIC
     Indication: Thrombocytopenia
     Dosage: 1UNIT
     Route: 042
     Dates: start: 20170315, end: 20170315
  26. PREDNISOLONE [Concomitant]
     Active Substance: PREDNISOLONE
     Indication: Thrombocytopenia
     Route: 048
     Dates: start: 20170317, end: 20170321
  27. PREDNISOLONE [Concomitant]
     Active Substance: PREDNISOLONE
     Indication: Platelet count decreased
     Route: 048
     Dates: start: 20170511, end: 20170519
  28. PREDNISOLONE [Concomitant]
     Active Substance: PREDNISOLONE
     Route: 048
     Dates: start: 20170520, end: 20170521
  29. PANTOPRAZOLE [Concomitant]
     Active Substance: PANTOPRAZOLE
     Indication: Chest pain
     Dosage: PREVENT REFLUX WHILE ON STEROIDS
     Route: 048
     Dates: start: 20170511, end: 20170521
  30. PANTOPRAZOLE [Concomitant]
     Active Substance: PANTOPRAZOLE
     Route: 048
     Dates: start: 20201009, end: 20201009
  31. ASPIRIN [Concomitant]
     Active Substance: ASPIRIN
     Indication: Chest pain
     Dosage: SEVERE PROGRESSIVE AORTIC STENOSIS (VALVE REPLACEMENT)
     Route: 048
     Dates: start: 20170624
  32. ASPIRIN [Concomitant]
     Active Substance: ASPIRIN
     Route: 048
     Dates: start: 20201009, end: 20201009
  33. PLAVIX [Concomitant]
     Active Substance: CLOPIDOGREL BISULFATE
     Dosage: VALVE REPLACEMENT
     Route: 048
     Dates: start: 20170624
  34. METOPROLOL [Concomitant]
     Active Substance: METOPROLOL
     Indication: Atrial fibrillation
     Route: 048
     Dates: start: 20210413, end: 20210414
  35. METOPROLOL [Concomitant]
     Active Substance: METOPROLOL
     Route: 048
     Dates: start: 20210414, end: 20210415
  36. METOPROLOL [Concomitant]
     Active Substance: METOPROLOL
     Route: 048
     Dates: start: 20201009, end: 20201009
  37. METOPROLOL [Concomitant]
     Active Substance: METOPROLOL
     Route: 048
     Dates: start: 20190511
  38. METOPROLOL [Concomitant]
     Active Substance: METOPROLOL
     Route: 048
     Dates: start: 20201010, end: 20201011
  39. LIPITOR [Concomitant]
     Active Substance: ATORVASTATIN CALCIUM
     Indication: Blood cholesterol increased
     Route: 048
     Dates: start: 20180101
  40. EXFORGE [Concomitant]
     Active Substance: AMLODIPINE BESYLATE\VALSARTAN
     Indication: Hypertension
     Route: 048
     Dates: start: 20190313, end: 20190613
  41. AMLODIPINE BESYLATE\PERINDOPRIL ARGININE [Concomitant]
     Active Substance: AMLODIPINE BESYLATE\PERINDOPRIL ARGININE
     Indication: Hypertension
     Route: 048
     Dates: start: 20190614
  42. MORPHINE [Concomitant]
     Active Substance: MORPHINE
     Indication: Chest pain
     Route: 042
     Dates: start: 20201009, end: 20201009
  43. ONDANSETRON [Concomitant]
     Active Substance: ONDANSETRON
     Indication: Nausea
     Route: 042
     Dates: start: 20201009, end: 20201009
  44. NITROGLYCERIN [Concomitant]
     Active Substance: NITROGLYCERIN
     Indication: Chest pain
     Dates: start: 20201009, end: 20201009
  45. LIGNOCAINE VISCOUS [Concomitant]
     Indication: Chest pain
     Route: 048
     Dates: start: 20201009, end: 20201009
  46. FUROSEMIDE [Concomitant]
     Active Substance: FUROSEMIDE
     Indication: Hypervolaemia
     Route: 042
     Dates: start: 20201009, end: 20201009
  47. PARACETAMOL OSTEO [Concomitant]
     Route: 048
     Dates: start: 20210316
  48. LYRICA [Concomitant]
     Active Substance: PREGABALIN
     Route: 048
     Dates: start: 20210316

REACTIONS (1)
  - Aortic stenosis [Not Recovered/Not Resolved]

NARRATIVE: CASE EVENT DATE: 20170224
